FAERS Safety Report 17433774 (Version 1)
Quarter: 2020Q1

REPORT INFORMATION
  Report Type: Spontaneous
  Country: US (occurrence: US)
  Receive Date: 20200218
  Receipt Date: 20200218
  Transmission Date: 20200409
  Serious: No
  Sender: FDA-Public Use
  Company Number: None

PATIENT
  Age: 7 Year
  Sex: Female
  Weight: 22.05 kg

DRUGS (2)
  1. EMVERM [Suspect]
     Active Substance: MEBENDAZOLE
     Indication: ENTEROBIASIS
     Dosage: ?          QUANTITY:1 TABLET(S);OTHER FREQUENCY:ONCE;?
     Route: 048
     Dates: start: 20200128, end: 20200128
  2. VITAMINS (KIDS AIRBORNE FOR IMMUNE SUPPORT) [Concomitant]

REACTIONS (2)
  - Pruritus [None]
  - Erythema [None]

NARRATIVE: CASE EVENT DATE: 20200204
